FAERS Safety Report 17125205 (Version 1)
Quarter: 2019Q4

REPORT INFORMATION
  Report Type: Spontaneous
  Country: CN (occurrence: CN)
  Receive Date: 20191206
  Receipt Date: 20191206
  Transmission Date: 20200122
  Serious: Yes (Other)
  Sender: FDA-Public Use
  Company Number: CN-BAXTER-2019BAX024578

PATIENT
  Age: 55 Year
  Sex: Female
  Weight: 42.9 kg

DRUGS (4)
  1. ENDOXAN [Suspect]
     Active Substance: CYCLOPHOSPHAMIDE
     Indication: RENAL AMYLOIDOSIS
     Dosage: CYCLOPHOSPHAMIDE+ 0.9% NS 250ML
     Route: 041
     Dates: start: 20191109, end: 20191110
  2. ENDOXAN [Suspect]
     Active Substance: CYCLOPHOSPHAMIDE
     Dosage: DOSE RE-INTRODUCED (CYCLOPHOSPHAMIDE + 0.9% NS)
     Route: 041
     Dates: start: 201911
  3. 0.9% SODIUM CHLORIDE INJECTION [Suspect]
     Active Substance: SODIUM CHLORIDE
     Dosage: DOSE RE-INTRODUCED (CYCLOPHOSPHAMIDE + 0.9% NS)
     Route: 041
     Dates: start: 201911
  4. 0.9% SODIUM CHLORIDE INJECTION [Suspect]
     Active Substance: SODIUM CHLORIDE
     Indication: MEDICATION DILUTION
     Dosage: CYCLOPHOSPHAMIDE 600 MG + 0.9% NS
     Route: 041
     Dates: start: 20191109, end: 20191110

REACTIONS (1)
  - Bone marrow failure [Recovering/Resolving]

NARRATIVE: CASE EVENT DATE: 20191119
